FAERS Safety Report 8120394-3 (Version None)
Quarter: 2012Q1

REPORT INFORMATION
  Report Type: 
  Country: None (occurrence: None)
  Receive Date: 20120207
  Receipt Date: 20120201
  Transmission Date: 20120608
  Serious: Yes (Other)
  Sender: FDA-Public Use
  Company Number: JP-GLAXOSMITHKLINE-B0779166A

PATIENT
  Age: 63 Year
  Sex: Female

DRUGS (3)
  1. FLUNASE (JAPAN) [Suspect]
     Indication: PRODUCT USED FOR UNKNOWN INDICATION
     Route: 045
  2. FLUTICASONE PROPIONATE/SALMETEROL [Suspect]
     Indication: ASTHMA
     Dosage: 500MCG PER DAY
     Route: 055
  3. MEPTIN AIR [Concomitant]
     Route: 055

REACTIONS (4)
  - PRODUCTIVE COUGH [None]
  - SKIN ATROPHY [None]
  - COUGH [None]
  - SKIN FRAGILITY [None]
